FAERS Safety Report 7577121-8 (Version None)
Quarter: 2011Q2

REPORT INFORMATION
  Report Type: 
  Country: None (occurrence: None)
  Receive Date: 20110628
  Receipt Date: 20081001
  Transmission Date: 20111010
  Serious: Yes (Death, Hospitalization, Other)
  Sender: FDA-Public Use
  Company Number: US-BAYER-201039234NA

PATIENT
  Age: 80 Year
  Sex: Male
  Weight: 79 kg

DRUGS (32)
  1. AMILORIDE HYDROCHLORIDE [Concomitant]
     Dosage: 5 MG
     Route: 048
  2. NORVASC [Concomitant]
     Dosage: 5 MG, BID
     Route: 048
  3. ANCEF [Concomitant]
     Dosage: 2 G
     Route: 042
  4. AMIODARONE HCL [Concomitant]
     Dosage: UNK
     Route: 042
     Dates: start: 20061009, end: 20061020
  5. NITROGLYCERIN [Concomitant]
     Route: 042
  6. BUMEX [Concomitant]
     Dosage: UNK
     Route: 042
     Dates: end: 20061023
  7. DOBUTAMINE HCL [Concomitant]
     Route: 042
  8. POTASSIUM [Concomitant]
     Dosage: 20 MEQ, UNK
     Route: 048
     Dates: start: 20030101
  9. MILRINONE [Concomitant]
     Dosage: UNK
     Route: 042
     Dates: start: 20061009, end: 20061020
  10. TRASYLOL [Suspect]
     Indication: AORTIC ANEURYSM REPAIR
     Dosage: 25CC/HR INFUSION
     Route: 042
     Dates: start: 20061009, end: 20061010
  11. TIAZAC [Concomitant]
     Dosage: 240 MG
     Route: 048
  12. SPIRONOLACTONE [Concomitant]
     Dosage: 25 MG
     Route: 048
  13. LEVOPHED [Concomitant]
     Dosage: UNK
     Route: 042
     Dates: end: 20061020
  14. SINGULAIR [Concomitant]
     Dosage: 10 MG, UNK
     Route: 048
     Dates: start: 20050101
  15. TRASYLOL [Suspect]
     Indication: AORTIC VALVE REPLACEMENT
     Dosage: 1 ML INITIAL (TEST) DOSE
     Route: 042
     Dates: start: 20061009, end: 20061010
  16. PLASMA [Concomitant]
     Dosage: 4 U, ONCE
     Route: 042
     Dates: start: 20061009
  17. PLATELETS [Concomitant]
     Dosage: 20 U, ONCE
     Route: 042
     Dates: start: 20061010
  18. CRYOPRECIPITATES [Concomitant]
     Dosage: 10 U, ONCE
     Route: 042
     Dates: start: 20061010
  19. ATACAND [Concomitant]
     Dosage: 32 MG
     Route: 048
  20. REGULAR INSULIN [Concomitant]
     Route: 042
  21. RED BLOOD CELLS [Concomitant]
     Dosage: 8 U, ONCE
     Route: 042
     Dates: start: 20061009
  22. ATENOLOL [Concomitant]
     Dosage: 25 MG
     Route: 048
     Dates: start: 19960101
  23. NAPROXEN [Concomitant]
     Dosage: UNK
     Dates: start: 19950101
  24. TRASYLOL [Suspect]
     Indication: CORONARY ARTERY BYPASS
     Dosage: 199CC LOADING DOSE
     Route: 042
     Dates: start: 20061009, end: 20061010
  25. PLAVIX [Concomitant]
     Dosage: 75 MG
     Route: 048
  26. HYDROCHLOROTHIAZIDE [Concomitant]
     Dosage: 25 MG
     Route: 048
     Dates: start: 20030101
  27. CLONIDINE HYDROCHLORIDE [Concomitant]
     Dosage: 0.2 MG 2 AT NIGHT
     Route: 048
  28. LESCOL XL [Concomitant]
     Dosage: 80 MG
     Route: 048
     Dates: start: 20030101
  29. HEPARIN [Concomitant]
     Dosage: 6,000UNITS
     Route: 042
  30. LEVOXYL [Concomitant]
     Dosage: 112 MCG
     Route: 048
     Dates: start: 19960101
  31. ZOLOFT [Concomitant]
     Dosage: 100 MG
     Route: 048
  32. ADVAIR DISKUS 100/50 [Concomitant]
     Dosage: 250/50 INHALER, 1 PUFF
     Dates: start: 19950101

REACTIONS (9)
  - EMOTIONAL DISTRESS [None]
  - RENAL FAILURE ACUTE [None]
  - INJURY [None]
  - ACUTE MYOCARDIAL INFARCTION [None]
  - ANXIETY [None]
  - AORTIC DISSECTION [None]
  - PAIN [None]
  - HYPOXIC-ISCHAEMIC ENCEPHALOPATHY [None]
  - CARDIAC ARREST [None]
